FAERS Safety Report 9268873 (Version 1)
Quarter: 2013Q2

REPORT INFORMATION
  Report Type: Spontaneous
  Country: DE (occurrence: DE)
  Receive Date: 20130503
  Receipt Date: 20130503
  Transmission Date: 20140414
  Serious: Yes (Other)
  Sender: FDA-Public Use
  Company Number: GXKR2013DE001662

PATIENT
  Sex: Female

DRUGS (1)
  1. BISOHEXAL [Suspect]
     Route: 048

REACTIONS (2)
  - Suicide attempt [Unknown]
  - Nervous system disorder [Unknown]
